FAERS Safety Report 4628864-7 (Version None)
Quarter: 2005Q2

REPORT INFORMATION
  Report Type: 
  Country: None (occurrence: None)
  Receive Date: 20050406
  Receipt Date: 20050322
  Transmission Date: 20051028
  Serious: Yes (Death)
  Sender: FDA-Public Use
  Company Number: MK200503-0280-1

PATIENT
  Age: 61 Year
  Sex: Female

DRUGS (3)
  1. RESTORIL [Suspect]
     Indication: SOMNOLENCE
     Dosage: 15MG
     Dates: start: 20040526
  2. OXYCONTIN [Suspect]
     Dates: start: 20040526
  3. DILAUDID [Suspect]
     Dates: start: 20040526

REACTIONS (5)
  - ARRHYTHMIA [None]
  - DEEP VEIN THROMBOSIS [None]
  - INADEQUATE ANALGESIA [None]
  - RESPIRATORY FAILURE [None]
  - SCIATICA [None]
